FAERS Safety Report 16931308 (Version 1)
Quarter: 2019Q4

REPORT INFORMATION
  Report Type: Spontaneous
  Country: US (occurrence: US)
  Receive Date: 20190826
  Receipt Date: 20190826
  Transmission Date: 20200122
  Serious: Yes (Death)
  Sender: FDA-Public Use
  Company Number: None

PATIENT
  Age: 74 Year
  Sex: Male
  Weight: 87.7 kg

DRUGS (16)
  1. LUPRON [Concomitant]
     Active Substance: LEUPROLIDE ACETATE
  2. ZENPEP [Concomitant]
     Active Substance: PANCRELIPASE AMYLASE\PANCRELIPASE LIPASE\PANCRELIPASE PROTEASE
  3. INSULIN [Concomitant]
     Active Substance: INSULIN NOS
  4. FOLIC ACID. [Concomitant]
     Active Substance: FOLIC ACID
  5. CICLOPIROX. [Concomitant]
     Active Substance: CICLOPIROX
  6. SIRONOLOACTONE [Concomitant]
  7. ENZALUTAMIDE [Suspect]
     Active Substance: ENZALUTAMIDE
     Indication: PROSTATE CANCER
     Route: 048
     Dates: start: 20160726
  8. FUROSEMIDE. [Concomitant]
     Active Substance: FUROSEMIDE
  9. COQ10 [Concomitant]
     Active Substance: UBIDECARENONE
  10. DENOSUMAB [Concomitant]
     Active Substance: DENOSUMAB
  11. VITAMIN D [Concomitant]
     Active Substance: VITAMIN D NOS
  12. METOLAZONE. [Concomitant]
     Active Substance: METOLAZONE
  13. ALLOPURINAL [Concomitant]
     Active Substance: ALLOPURINOL
  14. CARVEDILOL. [Concomitant]
     Active Substance: CARVEDILOL
  15. OMEPRAZOLE. [Concomitant]
     Active Substance: OMEPRAZOLE
  16. TORSEMIDE. [Concomitant]
     Active Substance: TORSEMIDE

REACTIONS (1)
  - Cardiac failure [None]

NARRATIVE: CASE EVENT DATE: 20190824
